FAERS Safety Report 11718614 (Version 1)
Quarter: 2015Q4

REPORT INFORMATION
  Report Type: Spontaneous
  Country: US (occurrence: None)
  Receive Date: 20151109
  Receipt Date: 20151109
  Transmission Date: 20160304
  Serious: No
  Sender: FDA-Public Use
  Company Number: None

PATIENT
  Age: 45 Year
  Sex: Female
  Weight: 57.15 kg

DRUGS (1)
  1. BOTOX COSMETIC [Suspect]
     Active Substance: ONABOTULINUMTOXINA
     Indication: SKIN COSMETIC PROCEDURE
     Dates: start: 20150831

REACTIONS (7)
  - Hypersensitivity [None]
  - Paraesthesia [None]
  - Oesophageal spasm [None]
  - Anxiety [None]
  - Headache [None]
  - Oropharyngeal discomfort [None]
  - Hypoaesthesia [None]

NARRATIVE: CASE EVENT DATE: 20150831
